FAERS Safety Report 23693361 (Version 1)
Quarter: 2024Q2

REPORT INFORMATION
  Report Type: Spontaneous
  Country: AU (occurrence: AU)
  Receive Date: 20240401
  Receipt Date: 20240401
  Transmission Date: 20240716
  Serious: Yes (Other)
  Sender: FDA-Public Use
  Company Number: AU-PFIZER INC-PV202400027723

PATIENT
  Age: 74 Year
  Sex: Female
  Weight: 85 kg

DRUGS (3)
  1. PAXLOVID [Suspect]
     Active Substance: NIRMATRELVIR\RITONAVIR
     Dosage: [NIRMATRELVIR 300 MG]/[RITONAVIR 100 MG]; 2X/DAY
  2. VITAMIN C [Concomitant]
     Active Substance: ASCORBIC ACID
  3. PANADOL [Concomitant]
     Active Substance: ACETAMINOPHEN

REACTIONS (9)
  - Dysgeusia [Recovered/Resolved]
  - Sleep disorder [Not Recovered/Not Resolved]
  - Poor quality product administered [Unknown]
  - Drug hypersensitivity [Recovered/Resolved]
  - Nausea [Recovered/Resolved]
  - Diarrhoea [Recovered/Resolved]
  - Asthenia [Recovered/Resolved]
  - Presyncope [Recovered/Resolved]
  - Malaise [Unknown]

NARRATIVE: CASE EVENT DATE: 20240206
